FAERS Safety Report 13696503 (Version 1)
Quarter: 2017Q2

REPORT INFORMATION
  Report Type: Spontaneous
  Country: DE (occurrence: DE)
  Receive Date: 20170628
  Receipt Date: 20170628
  Transmission Date: 20170830
  Serious: Yes (Life-Threatening, Other)
  Sender: FDA-Public Use
  Company Number: DE-TORRENT-00006635

PATIENT
  Age: 1 Day
  Sex: Female
  Weight: 3 kg

DRUGS (3)
  1. FOLIO [Concomitant]
     Active Substance: FOLIC ACID
  2. QUETIAPINE FUMARATE. [Suspect]
     Active Substance: QUETIAPINE FUMARATE
  3. MISOPROSTOL. [Concomitant]
     Active Substance: MISOPROSTOL

REACTIONS (4)
  - Foetal exposure during pregnancy [Unknown]
  - Lactic acidosis [Recovered/Resolved]
  - Atrial septal defect [Unknown]
  - Apparent life threatening event [Recovered/Resolved]

NARRATIVE: CASE EVENT DATE: 20161002
